FAERS Safety Report 7368781-5 (Version None)
Quarter: 2011Q1

REPORT INFORMATION
  Report Type: 
  Country: None (occurrence: None)
  Receive Date: 20110321
  Receipt Date: 20110321
  Transmission Date: 20110831
  Serious: Yes (Death, Life-Threatening, Hospitalization, Disabling, Congenital Anomaly, Other)
  Sender: FDA-Public Use
  Company Number: None

PATIENT
  Age: 61 Year
  Sex: Male
  Weight: 113.8529 kg

DRUGS (1)
  1. FENTANYL [Suspect]
     Indication: PAIN
     Dosage: 1 PATCH X EACH 3 DAYS TRANSDERMAL
     Route: 062
     Dates: start: 20080501, end: 20110319

REACTIONS (6)
  - SEDATION [None]
  - RESTLESSNESS [None]
  - INSOMNIA [None]
  - DEPRESSED LEVEL OF CONSCIOUSNESS [None]
  - PRODUCT SUBSTITUTION ISSUE [None]
  - HYPOVENTILATION [None]
